FAERS Safety Report 6453817-6 (Version None)
Quarter: 2009Q4

REPORT INFORMATION
  Report Type: 
  Country: None (occurrence: None)
  Receive Date: 20091124
  Receipt Date: 20091109
  Transmission Date: 20100525
  Serious: Yes (Other)
  Sender: FDA-Public Use
  Company Number: US-TYCO HEALTHCARE/MALLINCKRODT-T200800701

PATIENT
  Sex: Male

DRUGS (7)
  1. MD-GASTROVIEW [Suspect]
     Indication: VENOGRAM
     Dosage: 50 ML, SINGLE
     Route: 042
     Dates: start: 20080414, end: 20080414
  2. ENOXAPARIN SODIUM [Suspect]
     Indication: THROMBOSIS PROPHYLAXIS
     Dosage: 30 MG, 2/1 DAY
     Route: 058
     Dates: start: 20080316, end: 20080413
  3. PLACEBO [Suspect]
     Indication: THROMBOSIS PROPHYLAXIS
  4. APIXABAN [Suspect]
     Indication: THROMBOSIS PROPHYLAXIS
     Dosage: 2.5 MG, 2/1 DAY
     Route: 048
     Dates: start: 20080318, end: 20080414
  5. OMNIPAQUE 140 [Suspect]
     Dosage: 50 (CC) ML, SINGLE
  6. CARDURA                            /00639302/ [Concomitant]
  7. LORTAB [Concomitant]
     Dosage: UNK
     Dates: start: 20080319

REACTIONS (6)
  - CELLULITIS [None]
  - CHEST DISCOMFORT [None]
  - HYPERSENSITIVITY [None]
  - MEDICATION ERROR [None]
  - NAUSEA [None]
  - THROAT TIGHTNESS [None]
